FAERS Safety Report 5170722-6 (Version None)
Quarter: 2006Q4

REPORT INFORMATION
  Report Type: 
  Country: None (occurrence: None)
  Receive Date: 20060919
  Receipt Date: 20060530
  Transmission Date: 20070319
  Serious: No
  Sender: FDA-Public Use
  Company Number: 2006US001194

PATIENT
  Age: 82 Year
  Sex: Female

DRUGS (15)
  1. VESICARE [Suspect]
     Indication: HYPERTONIC BLADDER
     Dosage: 10 MG, UID/QD, ORAL
     Route: 048
     Dates: start: 20060301
  2. NORTRIPTYLINE HCL [Concomitant]
  3. LOVASTATIN [Concomitant]
  4. POTASSIUM CHLORIDE [Concomitant]
  5. DIOVAN [Concomitant]
  6. AMARYL [Concomitant]
  7. PROTONIX [Concomitant]
  8. MAGNESIUM OXIDE (MAGNESIUM OXIDE) [Concomitant]
  9. HYDROCODONE BITARTRATE [Concomitant]
  10. CYANOCOBALAMIN [Concomitant]
  11. ACTONEL [Concomitant]
  12. STOOL SOFTENER (DOCUSATE SODIUM) [Concomitant]
  13. LORATADINE [Concomitant]
  14. ASCORBIC ACID [Concomitant]
  15. MULTIVITAMIN [Concomitant]

REACTIONS (1)
  - CONSTIPATION [None]
